FAERS Safety Report 6232191-4 (Version None)
Quarter: 2009Q2

REPORT INFORMATION
  Report Type: 
  Country: None (occurrence: None)
  Receive Date: 20090617
  Receipt Date: 20090612
  Transmission Date: 20091009
  Serious: Yes (Hospitalization)
  Sender: FDA-Public Use
  Company Number: FR-BRISTOL-MYERS SQUIBB COMPANY-14662472

PATIENT
  Age: 64 Year
  Sex: Female

DRUGS (2)
  1. TAXOL [Suspect]
     Indication: OVARIAN EPITHELIAL CANCER
     Dosage: D1, D8,D15,D21 Q4W START DATE 21MAR09
     Route: 042
     Dates: start: 20080404, end: 20080404
  2. CARBOPLATIN [Suspect]
     Indication: OVARIAN EPITHELIAL CANCER
     Dosage: 1 DF = 5 AUC Q4W START DATE 21 MAR09
     Route: 042
     Dates: start: 20080404, end: 20080404

REACTIONS (1)
  - CEREBRAL THROMBOSIS [None]
